FAERS Safety Report 8185503-9 (Version None)
Quarter: 2012Q1

REPORT INFORMATION
  Report Type: 
  Country: None (occurrence: None)
  Receive Date: 20120305
  Receipt Date: 20120228
  Transmission Date: 20120608
  Serious: Yes (Death, Other)
  Sender: FDA-Public Use
  Company Number: GB-ROCHE-765588

PATIENT
  Age: 51 Year
  Sex: Female
  Weight: 60 kg

DRUGS (4)
  1. EPREX [Suspect]
     Indication: NEPHROGENIC ANAEMIA
     Route: 058
     Dates: start: 19900101, end: 19900101
  2. EPREX [Suspect]
     Route: 058
     Dates: start: 19921203, end: 19930609
  3. MYCOPHENOLATE MOFETIL (CELLCEPT) [Suspect]
     Indication: PRODUCT USED FOR UNKNOWN INDICATION
     Route: 065
     Dates: start: 20071112, end: 20110113
  4. TACROLIMUS [Suspect]
     Indication: PRODUCT USED FOR UNKNOWN INDICATION
     Route: 065

REACTIONS (3)
  - DEATH [None]
  - ANTI-ERYTHROPOIETIN ANTIBODY NEGATIVE [None]
  - APLASIA PURE RED CELL [None]
